FAERS Safety Report 21549419 (Version 1)
Quarter: 2022Q4

REPORT INFORMATION
  Report Type: Spontaneous
  Country: US (occurrence: US)
  Receive Date: 20221103
  Receipt Date: 20221103
  Transmission Date: 20230112
  Serious: No
  Sender: FDA-Public Use
  Company Number: US-PFIZER INC-202201269699

PATIENT

DRUGS (2)
  1. TIKOSYN [Interacting]
     Active Substance: DOFETILIDE
     Dosage: UNK
  2. CEPHALEXIN [Interacting]
     Active Substance: CEPHALEXIN
     Dosage: UNK

REACTIONS (2)
  - Drug interaction [Unknown]
  - Contraindicated product administered [Unknown]
